FAERS Safety Report 10928961 (Version 1)
Quarter: 2015Q1

REPORT INFORMATION
  Report Type: Spontaneous
  Country: US (occurrence: None)
  Receive Date: 20150317
  Receipt Date: 20150317
  Transmission Date: 20150721
  Serious: Yes (Hospitalization)
  Sender: FDA-Public Use
  Company Number: None

PATIENT
  Age: 20 Year
  Sex: Male
  Weight: 66.3 kg

DRUGS (2)
  1. CYCLOPHOSPHAMIDE. [Suspect]
     Active Substance: CYCLOPHOSPHAMIDE
     Dates: end: 20150223
  2. DOXORUBICIN HYDROCHLORIDE. [Suspect]
     Active Substance: DOXORUBICIN HYDROCHLORIDE
     Dates: end: 20150224

REACTIONS (13)
  - Septic shock [None]
  - Mental status changes [None]
  - Tachycardia [None]
  - Ischaemia [None]
  - Cardiotoxicity [None]
  - White blood cell count decreased [None]
  - Bacterial infection [None]
  - Blood creatinine increased [None]
  - Ejection fraction decreased [None]
  - Hypotension [None]
  - Sinus tachycardia [None]
  - Blood lactic acid decreased [None]
  - Troponin increased [None]

NARRATIVE: CASE EVENT DATE: 20150303
